FAERS Safety Report 4430873-8 (Version None)
Quarter: 2004Q3

REPORT INFORMATION
  Report Type: 
  Country: None (occurrence: None)
  Receive Date: 20040823
  Receipt Date: 20040813
  Transmission Date: 20050211
  Serious: Yes (Hospitalization)
  Sender: FDA-Public Use
  Company Number: FI-GLAXOSMITHKLINE-B0342423A

PATIENT
  Sex: Male

DRUGS (3)
  1. ZYBAN [Suspect]
     Dosage: 1TAB VARIABLE DOSE
     Route: 048
     Dates: start: 20040501, end: 20040509
  2. METOPROLOL SUCCINATE [Concomitant]
     Indication: HYPERTENSION
     Dosage: 47.5MG PER DAY
     Route: 048
  3. LINATIL [Concomitant]
     Indication: HYPERTENSION
     Dosage: 20MG PER DAY
     Route: 048

REACTIONS (8)
  - ARTHRALGIA [None]
  - ECZEMA VESICULAR [None]
  - EYE OEDEMA [None]
  - HYPERSENSITIVITY [None]
  - LIVER FUNCTION TEST ABNORMAL [None]
  - PHARYNGOLARYNGEAL PAIN [None]
  - PYREXIA [None]
  - URTICARIA [None]
